FAERS Safety Report 23397118 (Version 1)
Quarter: 2024Q1

REPORT INFORMATION
  Report Type: Spontaneous
  Country: US (occurrence: US)
  Receive Date: 20240112
  Receipt Date: 20240112
  Transmission Date: 20240410
  Serious: Yes (Other)
  Sender: FDA-Public Use
  Company Number: US-FreseniusKabi-FK202400620

PATIENT
  Sex: Female

DRUGS (1)
  1. OXYTOCIN [Suspect]
     Active Substance: OXYTOCIN
     Indication: Product used for unknown indication
     Dosage: FORM OF ADMINISTRATION: INJECTION

REACTIONS (3)
  - Product administration error [Unknown]
  - Maternal exposure timing unspecified [Unknown]
  - Drug ineffective [Unknown]
